FAERS Safety Report 9223758 (Version 2)
Quarter: 2013Q2

REPORT INFORMATION
  Report Type: Spontaneous
  Country: FR (occurrence: FR)
  Receive Date: 20130410
  Receipt Date: 20130429
  Transmission Date: 20140414
  Serious: Yes (Hospitalization, Other)
  Sender: FDA-Public Use
  Company Number: FR-AMGEN-FRASP2013023605

PATIENT
  Age: 82 Year
  Sex: Male
  Weight: 68 kg

DRUGS (10)
  1. ARANESP [Suspect]
     Indication: PRODUCT USED FOR UNKNOWN INDICATION
     Dosage: 50 MCG, Q2WK
     Route: 058
     Dates: start: 20120601, end: 20130330
  2. LASILIX                            /00032601/ [Concomitant]
  3. TEVETEN                            /01347302/ [Concomitant]
  4. MEDIATENSYL                        /00631801/ [Concomitant]
  5. AVLOCARDYL                         /00030001/ [Concomitant]
  6. KAYEXALATE [Concomitant]
  7. TAHOR [Concomitant]
  8. MOPRAL                             /00661201/ [Concomitant]
  9. TARDYFERON [Concomitant]
  10. BICARBONATE SODIUM [Concomitant]

REACTIONS (8)
  - Hot flush [Unknown]
  - Malaise [Unknown]
  - Haematoma [Unknown]
  - Tinnitus [Unknown]
  - Hallucination, auditory [Unknown]
  - Hypertension [Not Recovered/Not Resolved]
  - Flushing [Unknown]
  - Headache [Unknown]
